FAERS Safety Report 10015975 (Version 7)
Quarter: 2015Q1

REPORT INFORMATION
  Report Type: Spontaneous
  Country: US (occurrence: US)
  Receive Date: 20140317
  Receipt Date: 20150303
  Transmission Date: 20150720
  Serious: Yes (Hospitalization, Other)
  Sender: FDA-Public Use
  Company Number: US-PFIZER INC-2014074274

PATIENT
  Age: 54 Year
  Sex: Female
  Weight: 58 kg

DRUGS (4)
  1. ESTRING [Suspect]
     Active Substance: ESTRADIOL
     Indication: ATROPHIC VULVOVAGINITIS
     Dosage: UNK
     Route: 067
     Dates: start: 20140120, end: 20140312
  2. ESTRING [Suspect]
     Active Substance: ESTRADIOL
     Indication: MICTURITION URGENCY
     Dosage: UNK
     Route: 067
     Dates: start: 201403
  3. ASPIRIN. [Concomitant]
     Active Substance: ASPIRIN
     Dosage: UNK
     Dates: start: 2002
  4. NADOLOL. [Concomitant]
     Active Substance: NADOLOL
     Dosage: UNK
     Dates: start: 2002

REACTIONS (12)
  - Ear infection [Not Recovered/Not Resolved]
  - Pruritus [Not Recovered/Not Resolved]
  - Urine odour abnormal [Not Recovered/Not Resolved]
  - Feeling abnormal [Unknown]
  - Vaginal odour [Unknown]
  - Vaginal infection [Recovered/Resolved]
  - Skin disorder [Not Recovered/Not Resolved]
  - Pelvic pain [Not Recovered/Not Resolved]
  - Rib fracture [Unknown]
  - Eyelid infection [Not Recovered/Not Resolved]
  - Deep vein thrombosis [Recovered/Resolved]
  - Infected cyst [Unknown]

NARRATIVE: CASE EVENT DATE: 2014
